FAERS Safety Report 13997037 (Version 2)
Quarter: 2017Q4

REPORT INFORMATION
  Report Type: Spontaneous
  Country: US (occurrence: US)
  Receive Date: 20170921
  Receipt Date: 20171023
  Transmission Date: 20180321
  Serious: Yes (Hospitalization, Other)
  Sender: FDA-Public Use
  Company Number: US-PFIZER INC-2017403306

PATIENT
  Age: 45 Year
  Sex: Male
  Weight: 79.37 kg

DRUGS (1)
  1. PRISTIQ EXTENDED-RELEASE [Suspect]
     Active Substance: DESVENLAFAXINE SUCCINATE
     Indication: MENTAL DISORDER
     Dosage: 50 MG, 1X/DAY
     Route: 048

REACTIONS (6)
  - Suicide attempt [Unknown]
  - Overdose [Unknown]
  - Intentional self-injury [Unknown]
  - Feeling abnormal [Unknown]
  - Hallucination [Unknown]
  - Weight decreased [Unknown]

NARRATIVE: CASE EVENT DATE: 201710
